FAERS Safety Report 25551112 (Version 1)
Quarter: 2025Q3

REPORT INFORMATION
  Report Type: Spontaneous
  Country: EU (occurrence: EU)
  Receive Date: 20250714
  Receipt Date: 20250714
  Transmission Date: 20251020
  Serious: Yes (Hospitalization)
  Sender: SANDOZ
  Company Number: None

PATIENT
  Age: 87 Year
  Sex: Male
  Weight: 80.8 kg

DRUGS (2)
  1. AMOXICILLIN [Interacting]
     Active Substance: AMOXICILLIN
     Indication: Erysipelas
     Dosage: 1.000G TID
     Route: 048
     Dates: start: 202307, end: 202307
  2. METHOTREXATE [Interacting]
     Active Substance: METHOTREXATE
     Indication: Polymyalgia rheumatica
     Route: 048
     Dates: start: 20230123, end: 20230724

REACTIONS (2)
  - Pancytopenia [Recovered/Resolved]
  - Drug interaction [Recovered/Resolved]

NARRATIVE: CASE EVENT DATE: 20230701
